FAERS Safety Report 22162439 (Version 5)
Quarter: 2024Q1

REPORT INFORMATION
  Report Type: Spontaneous
  Country: US (occurrence: US)
  Receive Date: 20230331
  Receipt Date: 20240301
  Transmission Date: 20240409
  Serious: Yes (Other)
  Sender: FDA-Public Use
  Company Number: US-PFIZER INC-PV202300058654

PATIENT
  Age: 59 Year
  Sex: Female

DRUGS (2)
  1. INLYTA [Suspect]
     Active Substance: AXITINIB
     Dosage: UNK UNK, 2X/DAY
     Dates: start: 20230328
  2. INLYTA [Suspect]
     Active Substance: AXITINIB
     Dosage: 5 MG, 1X/DAY

REACTIONS (14)
  - Hypertension [Unknown]
  - Hypothyroidism [Unknown]
  - Coronavirus infection [Unknown]
  - Dry skin [Unknown]
  - Dermatitis [Unknown]
  - Pruritus [Unknown]
  - Eye pain [Unknown]
  - Eye discharge [Unknown]
  - Visual impairment [Unknown]
  - Hyperglycaemia [Unknown]
  - Pain [Unknown]
  - Nausea [Unknown]
  - Abdominal discomfort [Unknown]
  - Intentional product misuse [Unknown]

NARRATIVE: CASE EVENT DATE: 20230101
